FAERS Safety Report 24644541 (Version 2)
Quarter: 2025Q3

REPORT INFORMATION
  Report Type: Spontaneous
  Country: EU (occurrence: EU)
  Receive Date: 20241121
  Receipt Date: 20250803
  Transmission Date: 20251020
  Serious: Yes (Other)
  Sender: ALEXION PHARMACEUTICALS
  Company Number: EU-AstraZeneca-CH-00745308AM

PATIENT
  Age: 49 Year
  Sex: Female

DRUGS (1)
  1. DAPAGLIFLOZIN [Suspect]
     Active Substance: DAPAGLIFLOZIN
     Indication: Pulmonary valve disease

REACTIONS (6)
  - Seizure [Unknown]
  - Abdominal discomfort [Unknown]
  - Rheumatic heart disease [Unknown]
  - Abdominal pain [Unknown]
  - Renal disorder [Unknown]
  - Off label use [Unknown]
